FAERS Safety Report 6127307-4 (Version None)
Quarter: 2009Q1

REPORT INFORMATION
  Report Type: 
  Country: None (occurrence: None)
  Receive Date: 20090319
  Receipt Date: 20090311
  Transmission Date: 20090719
  Serious: Yes (Hospitalization)
  Sender: FDA-Public Use
  Company Number: 2009001883

PATIENT
  Age: 43 Year
  Sex: Female
  Weight: 55 kg

DRUGS (2)
  1. TREANDA [Suspect]
     Indication: NON-HODGKIN'S LYMPHOMA
     Dosage: (CYCLICAL),INTRAVENOUS ; (90 MG/M2,CYCLICAL),INTRAVENOUS
     Route: 042
     Dates: start: 20090224, end: 20090225
  2. RITUXAN [Concomitant]

REACTIONS (6)
  - ACNE [None]
  - ERYTHEMA [None]
  - INFUSION SITE ABSCESS [None]
  - INFUSION SITE REACTION [None]
  - NAUSEA [None]
  - WHITE BLOOD CELL COUNT INCREASED [None]
